FAERS Safety Report 18626635 (Version 2)
Quarter: 2021Q1

REPORT INFORMATION
  Report Type: Spontaneous
  Country: US (occurrence: US)
  Receive Date: 20201217
  Receipt Date: 20210208
  Transmission Date: 20210419
  Serious: Yes (Hospitalization, Other)
  Sender: FDA-Public Use
  Company Number: US-LUPIN PHARMACEUTICALS INC.-2020-10312

PATIENT
  Age: 88 Year
  Sex: Male

DRUGS (20)
  1. QUETIAPINE FUMARATE. [Suspect]
     Active Substance: QUETIAPINE FUMARATE
     Indication: BIPOLAR DISORDER
     Dosage: UNK
     Route: 065
  2. FLUOXETINE [Concomitant]
     Active Substance: FLUOXETINE HYDROCHLORIDE
     Indication: BIPOLAR DISORDER
     Dosage: 20 MILLIGRAM, QD
     Route: 065
  3. DIVALPROEX [Suspect]
     Active Substance: DIVALPROEX SODIUM
     Indication: BIPOLAR DISORDER
     Dosage: UNK
     Route: 065
  4. ASENAPINE. [Suspect]
     Active Substance: ASENAPINE
     Indication: BIPOLAR DISORDER
     Dosage: UNK
     Route: 065
  5. CLONAZEPAM. [Concomitant]
     Active Substance: CLONAZEPAM
     Indication: BIPOLAR DISORDER
     Dosage: UNK
     Route: 065
  6. ASENAPINE. [Suspect]
     Active Substance: ASENAPINE
     Indication: VASCULAR DEMENTIA
  7. FOLIC ACID. [Concomitant]
     Active Substance: FOLIC ACID
     Indication: BIPOLAR DISORDER
  8. CARBAMAZEPINE. [Concomitant]
     Active Substance: CARBAMAZEPINE
     Indication: VASCULAR DEMENTIA
  9. CLONAZEPAM. [Concomitant]
     Active Substance: CLONAZEPAM
     Indication: VASCULAR DEMENTIA
  10. FLUOXETINE [Concomitant]
     Active Substance: FLUOXETINE HYDROCHLORIDE
     Indication: VASCULAR DEMENTIA
  11. OLANZAPINE. [Suspect]
     Active Substance: OLANZAPINE
     Indication: VASCULAR DEMENTIA
  12. OLANZAPINE. [Suspect]
     Active Substance: OLANZAPINE
     Indication: BIPOLAR DISORDER
     Dosage: 15 MILLIGRAM, QD
     Route: 065
  13. CARBAMAZEPINE. [Concomitant]
     Active Substance: CARBAMAZEPINE
     Indication: BIPOLAR DISORDER
     Dosage: 400 MILLIGRAM, QD (STEADY STATE LEVEL 7.5 UG/ML)
     Route: 065
  14. LORAZEPAM. [Concomitant]
     Active Substance: LORAZEPAM
     Indication: VASCULAR DEMENTIA
     Dosage: 1 MILLIGRAM, QD
     Route: 065
  15. THIAMINE. [Concomitant]
     Active Substance: THIAMINE
     Indication: VASCULAR DEMENTIA
     Dosage: UNK
     Route: 065
  16. THIAMINE. [Concomitant]
     Active Substance: THIAMINE
     Indication: BIPOLAR DISORDER
  17. GABAPENTIN. [Concomitant]
     Active Substance: GABAPENTIN
     Indication: VASCULAR DEMENTIA
     Dosage: 100 MILLIGRAM, QD
     Route: 065
  18. GABAPENTIN. [Concomitant]
     Active Substance: GABAPENTIN
     Indication: BIPOLAR DISORDER
  19. FOLIC ACID. [Concomitant]
     Active Substance: FOLIC ACID
     Indication: VASCULAR DEMENTIA
     Dosage: UNK
     Route: 065
  20. QUETIAPINE FUMARATE. [Suspect]
     Active Substance: QUETIAPINE FUMARATE
     Indication: VASCULAR DEMENTIA

REACTIONS (2)
  - Drug ineffective [Unknown]
  - Constipation [Unknown]
